FAERS Safety Report 5009121-6 (Version None)
Quarter: 2006Q2

REPORT INFORMATION
  Report Type: 
  Country: None (occurrence: None)
  Receive Date: 20060523
  Receipt Date: 20060501
  Transmission Date: 20061013
  Serious: Yes (Hospitalization, Other)
  Sender: FDA-Public Use
  Company Number: US-MERCK-0605USA00342

PATIENT
  Age: 76 Year
  Sex: Male

DRUGS (4)
  1. VYTORIN [Suspect]
     Route: 048
     Dates: end: 20060101
  2. [THERAPY UNSPECIFIED] [Concomitant]
     Route: 065
  3. NEXIUM [Concomitant]
     Route: 065
  4. VITAMINS (UNSPECIFIED) [Concomitant]
     Route: 065

REACTIONS (3)
  - AUTOIMMUNE DISORDER [None]
  - DIALYSIS [None]
  - RENAL FAILURE [None]
